FAERS Safety Report 13689397 (Version 2)
Quarter: 2017Q4

REPORT INFORMATION
  Report Type: Report from Study
  Country: US (occurrence: US)
  Receive Date: 20170626
  Receipt Date: 20171214
  Transmission Date: 20180320
  Serious: Yes (Hospitalization)
  Sender: FDA-Public Use
  Company Number: US-VERTEX PHARMACEUTICALS-2016-005982

PATIENT
  Sex: Female

DRUGS (18)
  1. ALBUTEROL                          /00139501/ [Concomitant]
     Active Substance: ALBUTEROL
  2. VITAMIN D                          /00107901/ [Concomitant]
     Active Substance: ERGOCALCIFEROL
  3. ORKAMBI [Suspect]
     Active Substance: IVACAFTOR\LUMACAFTOR
     Indication: CYSTIC FIBROSIS
     Dosage: 400/250 MG, BID
     Route: 048
     Dates: start: 20150805, end: 20160801
  4. GENTAMICIN. [Concomitant]
     Active Substance: GENTAMICIN
  5. ZITHROMAX [Concomitant]
     Active Substance: AZITHROMYCIN DIHYDRATE
  6. NASONEX [Concomitant]
     Active Substance: MOMETASONE FUROATE
  7. NOVOLOG [Concomitant]
     Active Substance: INSULIN ASPART
  8. ORKAMBI [Suspect]
     Active Substance: IVACAFTOR\LUMACAFTOR
     Dosage: 400/250 MG, BID
     Route: 048
  9. OXYCODONE [Concomitant]
     Active Substance: OXYCODONE
  10. ICY HOT [Concomitant]
     Active Substance: MENTHOL\METHYL SALICYLATE
  11. CONTOUR [Concomitant]
  12. PROAIR HFA [Concomitant]
     Active Substance: ALBUTEROL SULFATE
  13. VICODIN [Concomitant]
     Active Substance: ACETAMINOPHEN\HYDROCODONE BITARTRATE
  14. SODIUM CHLORIDE. [Concomitant]
     Active Substance: SODIUM CHLORIDE
     Route: 055
  15. MELATONIN [Concomitant]
     Active Substance: MELATONIN
  16. CYCLOBENZAPRINE. [Concomitant]
     Active Substance: CYCLOBENZAPRINE
  17. SULFAMETHOXAZOLE AND TRIMETHOPRIM [Concomitant]
     Active Substance: SULFAMETHOXAZOLE\TRIMETHOPRIM
  18. RANITIDINE. [Concomitant]
     Active Substance: RANITIDINE

REACTIONS (4)
  - Hospitalisation [Unknown]
  - Chest discomfort [Unknown]
  - Dyspnoea [Unknown]
  - Infective pulmonary exacerbation of cystic fibrosis [Unknown]

NARRATIVE: CASE EVENT DATE: 2016
